FAERS Safety Report 22923042 (Version 3)
Quarter: 2023Q4

REPORT INFORMATION
  Report Type: Spontaneous
  Country: GB (occurrence: GB)
  Receive Date: 20230908
  Receipt Date: 20231107
  Transmission Date: 20240109
  Serious: Yes (Death)
  Sender: FDA-Public Use
  Company Number: GB-MHRA-MED-202308231447376810-MJRNW

PATIENT
  Sex: Male

DRUGS (5)
  1. AMISULPRIDE [Interacting]
     Active Substance: AMISULPRIDE
     Indication: Schizophrenia
     Dosage: 300 MILLIGRAM, QID
     Route: 065
     Dates: start: 20220701
  2. CLOZAPINE [Interacting]
     Active Substance: CLOZAPINE
     Indication: Schizophrenia
     Dosage: 325 MILLIGRAM, QD (125MG MANE AND 200MG NOCTE)
     Route: 065
  3. FLUOXETINE [Interacting]
     Active Substance: FLUOXETINE HYDROCHLORIDE
     Indication: Anxiety
     Dosage: 60 MILLIGRAM, QD
     Route: 065
     Dates: start: 202102
  4. LORAZEPAM [Concomitant]
     Active Substance: LORAZEPAM
     Indication: Anxiety
     Dosage: 1 MILLIGRAM, BID,(1MG BD PRN MAX 2MG IN 24HRS)
     Route: 065
  5. PREGABALIN [Concomitant]
     Active Substance: PREGABALIN
     Indication: Anxiety
     Dosage: 600 MILLIGRAM
     Route: 065

REACTIONS (5)
  - Death [Fatal]
  - Drug interaction [Fatal]
  - Toxicity to various agents [Fatal]
  - Medication error [Fatal]
  - Unresponsive to stimuli [Fatal]

NARRATIVE: CASE EVENT DATE: 20220729
